FAERS Safety Report 7834061-4 (Version None)
Quarter: 2011Q4

REPORT INFORMATION
  Report Type: 
  Country: None (occurrence: None)
  Receive Date: 20111024
  Receipt Date: 20111024
  Transmission Date: 20120403
  Serious: Yes (Hospitalization)
  Sender: FDA-Public Use
  Company Number: None

PATIENT
  Age: 82 Year
  Sex: Male
  Weight: 99.79 kg

DRUGS (1)
  1. APIDRA [Suspect]
     Indication: DIABETES MELLITUS
     Dosage: DEPENDS ON HIS BLOOD SUGAR
     Route: 058
     Dates: start: 20110901, end: 20111020

REACTIONS (2)
  - HYPOGLYCAEMIA [None]
  - PRODUCT MEASURED POTENCY ISSUE [None]
